FAERS Safety Report 9005328 (Version 2)
Quarter: 2013Q3

REPORT INFORMATION
  Report Type: Spontaneous
  Country: US (occurrence: US)
  Receive Date: 20130108
  Receipt Date: 20130708
  Transmission Date: 20140515
  Serious: Yes (Other)
  Sender: FDA-Public Use
  Company Number: US-GLAXOSMITHKLINE-A1004567A

PATIENT
  Age: 19 Year
  Sex: Female

DRUGS (13)
  1. POTIGA [Suspect]
     Indication: PARTIAL SEIZURES
     Route: 048
     Dates: start: 20120927, end: 201302
  2. VIMPAT [Concomitant]
  3. ABILIFY [Concomitant]
     Dosage: 20MG PER DAY
  4. SSRI [Concomitant]
  5. TRILEPTAL [Concomitant]
  6. LAMICTAL [Concomitant]
     Dosage: 150MG TWICE PER DAY
  7. FELBATOL [Concomitant]
     Dosage: 1200MG TWICE PER DAY
  8. AMBIEN [Concomitant]
     Dosage: 10MG AS REQUIRED
  9. ORAL CONTRACEPTIVE [Concomitant]
  10. KLONOPIN [Concomitant]
     Dosage: .25MG TWICE PER DAY
  11. ZOLOFT [Concomitant]
     Dosage: 150MG TWICE PER DAY
  12. ZYPREXA [Concomitant]
     Dosage: 5MG PER DAY
  13. FOLATE [Concomitant]
     Dosage: 1MG PER DAY

REACTIONS (2)
  - Convulsion [Recovering/Resolving]
  - Chromaturia [Recovered/Resolved]
